FAERS Safety Report 8861472 (Version 1)
Quarter: 2012Q4

REPORT INFORMATION
  Report Type: Spontaneous
  Country: US (occurrence: None)
  Receive Date: 20121022
  Receipt Date: 20121022
  Transmission Date: 20130627
  Serious: Yes (Hospitalization)
  Sender: FDA-Public Use
  Company Number: UTC-024261

PATIENT
  Age: 6 Year
  Sex: Female
  Weight: 19.8 kg

DRUGS (4)
  1. REMODULIN [Suspect]
     Indication: PRIMARY PULMONARY HYPERTENSION
     Dosage: 7.2 ug/kg (0.005 ug/kg, 1 in 1 min)
     Route: 041
     Dates: start: 20120928
  2. REMODULIN [Suspect]
     Indication: PRIMARY PULMONARY HYPERTENSION
  3. COUMADIN (WARFARIN) [Concomitant]
  4. TRACLEER (BOSENTAN) [Concomitant]

REACTIONS (7)
  - Gastroenteritis viral [None]
  - Injection site pruritus [None]
  - Injection site erythema [None]
  - Catheter site inflammation [None]
  - Dermatitis contact [None]
  - Scratch [None]
  - Anxiety [None]
